FAERS Safety Report 15464948 (Version 1)
Quarter: 2018Q4

REPORT INFORMATION
  Report Type: Spontaneous
  Country: US (occurrence: US)
  Receive Date: 20181004
  Receipt Date: 20181004
  Transmission Date: 20190204
  Serious: No
  Sender: FDA-Public Use
  Company Number: US-TEVA-2018-US-959865

PATIENT

DRUGS (1)
  1. TEMAZEPAM. [Suspect]
     Active Substance: TEMAZEPAM
     Route: 065

REACTIONS (1)
  - Insomnia [Unknown]
